FAERS Safety Report 8593568 (Version 3)
Quarter: 2013Q2

REPORT INFORMATION
  Report Type: Spontaneous
  Country: US (occurrence: US)
  Receive Date: 20120604
  Receipt Date: 20130531
  Transmission Date: 20140414
  Serious: Yes (Hospitalization)
  Sender: FDA-Public Use
  Company Number: US-BAYER-2012-053394

PATIENT
  Age: 30 Year
  Sex: Female
  Weight: 219.96 kg

DRUGS (4)
  1. YAZ [Suspect]
     Indication: CONTRACEPTION
     Dosage: UNK
     Dates: start: 2007, end: 2009
  2. YAZ [Suspect]
     Indication: CONTRACEPTION
     Dosage: UNK
  3. METOPROLOL [Concomitant]
  4. PRILOSEC [Concomitant]

REACTIONS (4)
  - Pulmonary embolism [None]
  - Injury [None]
  - Pain [None]
  - Emotional distress [None]
